FAERS Safety Report 7879430-1 (Version None)
Quarter: 2011Q4

REPORT INFORMATION
  Report Type: 
  Country: None (occurrence: None)
  Receive Date: 20111101
  Receipt Date: 20111021
  Transmission Date: 20120403
  Serious: Yes (Disabling)
  Sender: FDA-Public Use
  Company Number: JP-ASTRAZENECA-2011SE65458

PATIENT
  Age: 25 Year
  Sex: Female

DRUGS (2)
  1. SEROQUEL [Suspect]
     Route: 048
     Dates: start: 20110201
  2. SEROQUEL [Suspect]
     Route: 048
     Dates: start: 20090501, end: 20091001

REACTIONS (2)
  - DISABILITY [None]
  - DYSTONIA [None]
